FAERS Safety Report 6600314-0 (Version None)
Quarter: 2010Q1

REPORT INFORMATION
  Report Type: 
  Country: None (occurrence: None)
  Receive Date: 20100217
  Receipt Date: 20100204
  Transmission Date: 20100710
  Serious: Yes (Hospitalization, Other)
  Sender: FDA-Public Use
  Company Number: A-CH2009-29114

PATIENT
  Age: 69 Year
  Sex: Female
  Weight: 70 kg

DRUGS (9)
  1. TRACLEER [Suspect]
     Indication: PULMONARY ARTERIAL HYPERTENSION
     Dosage: 62.5 MG, BID ORAL
     Route: 048
     Dates: start: 20091014, end: 20091015
  2. PREVISCAN (FLUINDIONE) [Concomitant]
  3. COAPROVAL (IRBESARTAN, HYDROCHLOROTHIAZIDE) [Concomitant]
  4. ISOPTIN [Concomitant]
  5. NEXIUM [Concomitant]
  6. FENOFIBRATE [Concomitant]
  7. LASIX [Concomitant]
  8. DESLORATADINE [Concomitant]
  9. XANAX [Concomitant]

REACTIONS (6)
  - AUTONOMIC NERVOUS SYSTEM IMBALANCE [None]
  - DIPLOPIA [None]
  - HOT FLUSH [None]
  - NAUSEA [None]
  - VERTIGO [None]
  - VOMITING [None]
